FAERS Safety Report 13937160 (Version 2)
Quarter: 2017Q3

REPORT INFORMATION
  Report Type: Spontaneous
  Country: FR (occurrence: FR)
  Receive Date: 20170905
  Receipt Date: 20170928
  Transmission Date: 20171127
  Serious: Yes (Hospitalization, Other)
  Sender: FDA-Public Use
  Company Number: PHHY2017FR127587

PATIENT
  Age: 66 Year
  Sex: Male
  Weight: 78 kg

DRUGS (17)
  1. DOLIPRANE [Suspect]
     Active Substance: ACETAMINOPHEN
     Indication: ANALGESIC INTERVENTION SUPPORTIVE THERAPY
     Route: 048
     Dates: start: 20170617
  2. FOSFOCINE [Suspect]
     Active Substance: FOSFOMYCIN
     Indication: DIABETIC FOOT INFECTION
     Dosage: 12 G, QD
     Route: 042
     Dates: start: 20170802, end: 20170820
  3. TOUJEO [Suspect]
     Active Substance: INSULIN GLARGINE
     Indication: INSULIN-REQUIRING TYPE 2 DIABETES MELLITUS
     Dosage: 30 IU, QD
     Route: 058
     Dates: start: 20170616
  4. UVEDOSE [Suspect]
     Active Substance: CHOLECALCIFEROL
     Indication: VITAMIN D DEFICIENCY
     Dosage: 1 DF, Q2MO
     Route: 048
     Dates: start: 20170620, end: 20170720
  5. CIPROFLOXACINE MYLAN [Suspect]
     Active Substance: CIPROFLOXACIN
     Indication: DIABETIC FOOT INFECTION
     Dosage: 1.5 MG, QD
     Route: 048
     Dates: start: 20170628, end: 20170821
  6. HUMALOG [Suspect]
     Active Substance: INSULIN LISPRO
     Indication: INSULIN-REQUIRING TYPE 2 DIABETES MELLITUS
     Dosage: 10 IU, EVERY 6 DAYS
     Route: 058
  7. CETIRIZINE [Suspect]
     Active Substance: CETIRIZINE HYDROCHLORIDE
     Indication: ANTIALLERGIC THERAPY
     Dosage: 1 DF, QD
     Route: 048
     Dates: start: 20170710, end: 20170712
  8. METRONIDAZOLE B BRAUN [Suspect]
     Active Substance: METRONIDAZOLE
     Indication: DIABETIC FOOT INFECTION
     Dosage: 1.5 UNK, QD
     Route: 042
     Dates: start: 20170615, end: 20170629
  9. NEFOPAM MYLAN [Suspect]
     Active Substance: NEFOPAM
     Indication: ANALGESIC INTERVENTION SUPPORTIVE THERAPY
     Dosage: 20MG/2 ML
     Route: 042
     Dates: start: 20170617
  10. VANCOMYCIN SANDOZ [Suspect]
     Active Substance: VANCOMYCIN
     Indication: DIABETIC FOOT INFECTION
     Dosage: UNK
     Route: 042
     Dates: start: 20170721, end: 20170820
  11. CIMETIDINE ARROW [Suspect]
     Active Substance: CIMETIDINE
     Indication: GASTROOESOPHAGEAL REFLUX DISEASE
     Dosage: 2 DF, QD
     Route: 048
     Dates: start: 20170718, end: 20170719
  12. TAZOCILLINE [Suspect]
     Active Substance: PIPERACILLIN SODIUM\TAZOBACTAM SODIUM
     Indication: DIABETIC FOOT INFECTION
     Dosage: 12 G, QD
     Route: 042
     Dates: start: 20170615, end: 20170802
  13. ALPRAZOLAM MYLAN [Suspect]
     Active Substance: ALPRAZOLAM
     Indication: ANXIOLYTIC THERAPY
     Dosage: 1 DF, QD
     Route: 048
     Dates: start: 20170718, end: 20170719
  14. PRIMPERAN [Suspect]
     Active Substance: METOCLOPRAMIDE HYDROCHLORIDE
     Indication: ANTIEMETIC SUPPORTIVE CARE
     Dosage: UNK UNK, PRN
     Route: 048
  15. HUMALOG [Suspect]
     Active Substance: INSULIN LISPRO
     Dosage: 10 IU, EVERY 3 DAYS
     Route: 057
  16. LOVENOX [Suspect]
     Active Substance: ENOXAPARIN SODIUM
     Indication: THROMBOSIS PROPHYLAXIS
     Dosage: 1 DF, QD
     Route: 058
  17. ZAMADOL [Suspect]
     Active Substance: TRAMADOL HYDROCHLORIDE
     Indication: ANALGESIC INTERVENTION SUPPORTIVE THERAPY
     Dosage: 2 DF, QD
     Route: 048
     Dates: start: 20170618, end: 20170817

REACTIONS (2)
  - Hepatic enzyme increased [Not Recovered/Not Resolved]
  - Hepatitis [Not Recovered/Not Resolved]

NARRATIVE: CASE EVENT DATE: 20170817
